FAERS Safety Report 7000904-X (Version None)
Quarter: 2010Q3

REPORT INFORMATION
  Report Type: 
  Country: None (occurrence: None)
  Receive Date: 20100920
  Receipt Date: 20100910
  Transmission Date: 20110219
  Serious: Yes (Hospitalization)
  Sender: FDA-Public Use
  Company Number: PHHY2010FR43935

PATIENT
  Sex: Female

DRUGS (8)
  1. RASILEZ [Suspect]
     Indication: HYPERTENSION
     Dosage: 150 MG, QD
     Dates: start: 20091201, end: 20100611
  2. IXPRIM [Suspect]
     Indication: MUSCLE SPASMS
  3. METFORMIN [Concomitant]
     Indication: TYPE 2 DIABETES MELLITUS
     Dosage: 2250 MG, DAILY
  4. GLIMEPIRIDE [Concomitant]
     Indication: TYPE 2 DIABETES MELLITUS
     Dosage: 3 MG, DAILY
  5. PRAVASTATIN SODIUM [Concomitant]
     Indication: DYSLIPIDAEMIA
     Dosage: 20 MG, DAILY
  6. PREDNISONE [Concomitant]
     Indication: PAIN
     Dosage: 7 MG, DAILY
  7. DILTIAZEM HYDROCHLORIDE [Concomitant]
     Dosage: 200 MG, QD
  8. HEXAQUINE [Concomitant]
     Dosage: UNK

REACTIONS (10)
  - ANXIETY [None]
  - CHEST DISCOMFORT [None]
  - DIARRHOEA [None]
  - GAIT DISTURBANCE [None]
  - GASTROENTERITIS [None]
  - HYPOKALAEMIA [None]
  - HYPONATRAEMIA [None]
  - SPEECH DISORDER [None]
  - TREMOR [None]
  - VOMITING [None]
